FAERS Safety Report 12388942 (Version 1)
Quarter: 2016Q2

REPORT INFORMATION
  Report Type: Spontaneous
  Country: US (occurrence: US)
  Receive Date: 20160520
  Receipt Date: 20160520
  Transmission Date: 20160815
  Serious: Yes (Hospitalization)
  Sender: FDA-Public Use
  Company Number: PHHY2016US066342

PATIENT
  Age: 15 Year
  Sex: Female

DRUGS (1)
  1. BUPROPION. [Suspect]
     Active Substance: BUPROPION
     Indication: DEPRESSION
     Dosage: 150 MG, 90 TABLETS.
     Route: 065

REACTIONS (17)
  - Cardiogenic shock [Unknown]
  - Status epilepticus [Recovered/Resolved]
  - Leukocytosis [Unknown]
  - Overdose [Unknown]
  - Acute kidney injury [Unknown]
  - Cardiomyopathy [Unknown]
  - Seizure [Recovered/Resolved]
  - Sinus tachycardia [Unknown]
  - Cardiac arrest [Unknown]
  - Pulmonary oedema [Unknown]
  - Pulmonary haemorrhage [Unknown]
  - Mydriasis [Unknown]
  - Hypoxia [Unknown]
  - Pulseless electrical activity [Unknown]
  - Electrocardiogram QRS complex prolonged [Unknown]
  - Toxicity to various agents [Unknown]
  - Pneumonia aspiration [Unknown]
